FAERS Safety Report 10076016 (Version 2)
Quarter: 2014Q2

REPORT INFORMATION
  Report Type: Spontaneous
  Country: BR (occurrence: BR)
  Receive Date: 20140414
  Receipt Date: 20140430
  Transmission Date: 20141212
  Serious: Yes (Other)
  Sender: FDA-Public Use
  Company Number: BR-NOVOPROD-405509

PATIENT
  Age: 40 Year
  Sex: Male
  Weight: 74 kg

DRUGS (2)
  1. LEVEMIR FLEXPEN [Suspect]
     Indication: TYPE 2 DIABETES MELLITUS
     Dosage: 15 IU, QD(AT NIGHT)
     Route: 058
     Dates: start: 201305
  2. GLIFAGE [Concomitant]
     Indication: TYPE 2 DIABETES MELLITUS
     Dosage: 1 TAB, TID (AFTER BREAKFAST, LUNCH AND DINNER)
     Route: 048

REACTIONS (2)
  - Glaucoma [Not Recovered/Not Resolved]
  - Diabetic retinopathy [Recovered/Resolved with Sequelae]
